FAERS Safety Report 7445090-7 (Version None)
Quarter: 2011Q2

REPORT INFORMATION
  Report Type: 
  Country: None (occurrence: None)
  Receive Date: 20110429
  Receipt Date: 20091031
  Transmission Date: 20111010
  Serious: Yes (Death, Hospitalization, Other)
  Sender: FDA-Public Use
  Company Number: US-BAYER-200938349NA

PATIENT
  Age: 64 Year
  Sex: Female
  Weight: 56 kg

DRUGS (22)
  1. COUMADIN [Concomitant]
     Dosage: 2.5 MG, QD
     Route: 048
  2. AMIODARONE HCL [Concomitant]
     Dosage: 100 MG, QD
     Route: 048
  3. SENOKOT [SENNA ALEXANDRINA] [Concomitant]
     Dosage: UNK UNK, PRN
  4. LORAZEPAM [Concomitant]
     Dosage: 0.5 MG BID PRN
     Route: 048
     Dates: start: 20021127
  5. PHENERGAN [Concomitant]
     Dosage: UNK UNK, PRN
     Dates: start: 20021127
  6. TOPROL-XL [Concomitant]
     Dosage: 25 MG, QD
     Route: 048
  7. FENTANYL [Concomitant]
     Dosage: 10 MG, UNK
     Dates: start: 20021202
  8. HEPARIN [Concomitant]
     Dosage: 17000 U, UNK
     Route: 042
     Dates: start: 20021202
  9. VERAPAMIL [Concomitant]
     Dosage: 40 MG, BID
     Route: 048
     Dates: start: 20021127
  10. DIPRIVAN [Concomitant]
     Dosage: 30 MCG/MIN
     Route: 042
     Dates: start: 20021202
  11. PROTAMINE SULFATE [Concomitant]
     Dosage: 400 FOLLOWED BY A 100 UNITS/HR
     Route: 042
     Dates: start: 20021202
  12. PROTONIX [Concomitant]
  13. CALAN [Concomitant]
     Dosage: 240 MG, QD
     Route: 048
  14. PAVULON [Concomitant]
     Dosage: 10 MG, UNK
     Dates: start: 20021202
  15. LEVOPHED [Concomitant]
     Dosage: 0.16 MCG/KG/MIN
     Route: 042
     Dates: start: 20021202
  16. RED BLOOD CELLS, CONCENTRATED [Concomitant]
     Dosage: 5 U, UNK
     Dates: start: 20021202
  17. TRASYLOL [Suspect]
     Indication: CARDIAC OPERATION
     Dosage: 200 ML (PUMP PRIME)
     Route: 042
     Dates: start: 20021202, end: 20021202
  18. ACETYLSALICYLIC ACID SRT [Concomitant]
  19. DOBUTAMINE HYDROCHLORIDE [Concomitant]
     Dosage: 5 UNK
     Dates: start: 20021202
  20. AMIODARONE HCL [Concomitant]
     Dosage: 150 MG, UNK
     Route: 042
     Dates: start: 20021202
  21. TRASYLOL [Suspect]
     Indication: CORONARY ARTERY BYPASS
     Dosage: 1 ML, (INITIAL)
     Route: 042
     Dates: start: 20021202, end: 20021202
  22. PRIMACOR [Concomitant]
     Dosage: 0.5 UNK
     Dates: start: 20021202

REACTIONS (10)
  - ANXIETY [None]
  - CARDIOGENIC SHOCK [None]
  - INJURY [None]
  - FEAR [None]
  - RENAL FAILURE [None]
  - MYOCARDIAL INFARCTION [None]
  - UNEVALUABLE EVENT [None]
  - DEPRESSION [None]
  - PAIN [None]
  - ANHEDONIA [None]
